FAERS Safety Report 14136062 (Version 4)
Quarter: 2018Q1

REPORT INFORMATION
  Report Type: Report from Study
  Country: CA (occurrence: CA)
  Receive Date: 20171027
  Receipt Date: 20180306
  Transmission Date: 20180508
  Serious: Yes (Other)
  Sender: FDA-Public Use
  Company Number: CA-BRISTOL-MYERS SQUIBB COMPANY-BMS-2017-083787

PATIENT
  Sex: Female

DRUGS (1)
  1. ABATACEPT [Suspect]
     Active Substance: ABATACEPT
     Indication: RHEUMATOID ARTHRITIS
     Dosage: 750 MG, Q4WK
     Route: 042
     Dates: start: 20120518

REACTIONS (10)
  - Uterine polyp [Recovered/Resolved]
  - Pain in extremity [Unknown]
  - Post procedural haemorrhage [Unknown]
  - Mobility decreased [Unknown]
  - Arthralgia [Unknown]
  - Hepatic cirrhosis [Unknown]
  - Anaemia [Unknown]
  - Osteoarthritis [Unknown]
  - Varices oesophageal [Unknown]
  - Ascites [Unknown]
